FAERS Safety Report 23294218 (Version 7)
Quarter: 2024Q3

REPORT INFORMATION
  Report Type: Report from Study
  Country: DE (occurrence: DE)
  Receive Date: 20231213
  Receipt Date: 20240723
  Transmission Date: 20241017
  Serious: Yes (Other)
  Sender: NOVARTIS
  Company Number: DE-002147023-NVSC2023DE262668

PATIENT
  Sex: Female
  Weight: 75 kg

DRUGS (1)
  1. KESIMPTA [Suspect]
     Active Substance: OFATUMUMAB
     Indication: Relapsing multiple sclerosis
     Dosage: 20 MG, QMO
     Route: 058
     Dates: start: 20231204, end: 20231204

REACTIONS (12)
  - Anaphylactic reaction [Recovered/Resolved]
  - Bronchospasm [Unknown]
  - Stridor [Unknown]
  - Dyspnoea [Unknown]
  - Urticaria [Unknown]
  - Rash [Unknown]
  - Pruritus [Unknown]
  - Papule [Unknown]
  - Skin oedema [Unknown]
  - Tongue oedema [Unknown]
  - Tracheal oedema [Unknown]
  - Laryngeal oedema [Unknown]

NARRATIVE: CASE EVENT DATE: 20231204
